FAERS Safety Report 21469623 (Version 1)
Quarter: 2022Q4

REPORT INFORMATION
  Report Type: Spontaneous
  Country: US (occurrence: US)
  Receive Date: 20221018
  Receipt Date: 20221018
  Transmission Date: 20230112
  Serious: No
  Sender: FDA-Public Use
  Company Number: US-ADAMAS PHARMA, LLC-2022ADA00683

PATIENT
  Sex: Female

DRUGS (20)
  1. GOCOVRI [Suspect]
     Active Substance: AMANTADINE
     Indication: Dyskinesia
     Dosage: 137 MG, 1X/DAY EVERY NIGHT AT BEDTIME
     Route: 048
     Dates: start: 20210923
  2. AMANTADINE [Concomitant]
     Active Substance: AMANTADINE
  3. ASPIRIN [Concomitant]
     Active Substance: ASPIRIN
  4. CLARITIN [Concomitant]
     Active Substance: LORATADINE
  5. CYCLOBENZAPRINE [Concomitant]
     Active Substance: CYCLOBENZAPRINE
  6. FLONASE ALLERGY RELIEF [Concomitant]
     Active Substance: FLUTICASONE PROPIONATE
  7. KLOR-CON M20 ER [Concomitant]
  8. LEVOTHYROXINE [Concomitant]
     Active Substance: LEVOTHYROXINE
  9. MELATONIN/VITAMIN B6 [Concomitant]
  10. NASONEX [Concomitant]
     Active Substance: MOMETASONE FUROATE
  11. PRILOSEC OTC [Concomitant]
     Active Substance: OMEPRAZOLE MAGNESIUM
  12. ROPINIROLE [Concomitant]
     Active Substance: ROPINIROLE
  13. SINGULAIR [Concomitant]
     Active Substance: MONTELUKAST SODIUM
  14. STALEVO [Concomitant]
     Active Substance: CARBIDOPA\ENTACAPONE\LEVODOPA
  15. TRANSDERM-SC [Concomitant]
  16. TYLENOL PM [Concomitant]
     Active Substance: ACETAMINOPHEN\DIPHENHYDRAMINE
  17. VITAMIN D2 [Concomitant]
     Active Substance: ERGOCALCIFEROL
  18. VITAMIN D3 [Concomitant]
     Active Substance: CHOLECALCIFEROL
  19. XARELTO [Concomitant]
     Active Substance: RIVAROXABAN
  20. XOPENEX HFA [Concomitant]
     Active Substance: LEVALBUTEROL TARTRATE

REACTIONS (4)
  - Weight decreased [Not Recovered/Not Resolved]
  - Decreased appetite [Not Recovered/Not Resolved]
  - Dry mouth [Not Recovered/Not Resolved]
  - Insomnia [Not Recovered/Not Resolved]
